FAERS Safety Report 11816097 (Version 3)
Quarter: 2016Q1

REPORT INFORMATION
  Report Type: Spontaneous
  Country: IT (occurrence: IT)
  Receive Date: 20151209
  Receipt Date: 20160115
  Transmission Date: 20160525
  Serious: Yes (Other)
  Sender: FDA-Public Use
  Company Number: PHHY2015IT159508

PATIENT
  Age: 23 Year
  Sex: Female

DRUGS (2)
  1. LORAZEPAM. [Suspect]
     Active Substance: LORAZEPAM
     Indication: ANXIETY
     Dosage: 20 DRP, ONCE/SINGLE
     Route: 048
     Dates: start: 20150525, end: 20150525
  2. XANAX [Suspect]
     Active Substance: ALPRAZOLAM
     Indication: ANXIETY
     Dosage: 30 DRP, ONCE/SINGLE
     Route: 048
     Dates: start: 20150525, end: 20150525

REACTIONS (3)
  - Psychomotor retardation [Recovering/Resolving]
  - Vertigo [Recovering/Resolving]
  - Drug abuse [Unknown]

NARRATIVE: CASE EVENT DATE: 20150525
